FAERS Safety Report 5395194-8 (Version None)
Quarter: 2007Q3

REPORT INFORMATION
  Report Type: 
  Country: None (occurrence: None)
  Receive Date: 20070724
  Receipt Date: 20070717
  Transmission Date: 20080115
  Serious: Yes (Other)
  Sender: FDA-Public Use
  Company Number: US-ASTRAZENECA-2007UW17033

PATIENT
  Age: 15 Year
  Sex: Female

DRUGS (6)
  1. SEROQUEL [Suspect]
     Indication: BIPOLAR DISORDER
     Route: 048
  2. SEROQUEL [Suspect]
     Route: 048
     Dates: start: 20070712
  3. FLUOXETINE [Concomitant]
  4. TYLENOL W/ CODEINE NO. 3 [Concomitant]
  5. RETIN-A [Concomitant]
  6. CLINDAMYCIN HCL [Concomitant]

REACTIONS (6)
  - DYSPHAGIA [None]
  - GINGIVAL BLEEDING [None]
  - GINGIVAL SWELLING [None]
  - ORAL PAIN [None]
  - RESPIRATORY DISTRESS [None]
  - SWOLLEN TONGUE [None]
